FAERS Safety Report 4512052-9 (Version None)
Quarter: 2004Q4

REPORT INFORMATION
  Report Type: 
  Country: None (occurrence: None)
  Receive Date: 20041123
  Receipt Date: 20041005
  Transmission Date: 20050328
  Serious: Yes (Death)
  Sender: FDA-Public Use
  Company Number: A04200400935

PATIENT
  Age: 54 Year
  Sex: Female

DRUGS (3)
  1. ELOXATIN [Suspect]
     Dosage: 49.88 MG/M2 OTHER (CUMULATIVE DOSE:  85 MG) INTRAVENOUS DRIP
     Route: 041
     Dates: start: 20040706, end: 20040706
  2. FLUOROURACIL [Suspect]
     Indication: COLON CANCER
     Dosage: 1995.07 MG/M2 OTHER (CUMULATIVE DOSE:  3400 MG) INTRAVENOUS NOS
     Route: 042
     Dates: start: 20040706, end: 20040707
  3. LEUCOVORIN CALCIUM [Concomitant]

REACTIONS (2)
  - CARDIAC DISORDER [None]
  - SUDDEN DEATH [None]
